FAERS Safety Report 10228537 (Version 2)
Quarter: 2014Q2

REPORT INFORMATION
  Report Type: Spontaneous
  Country: DE (occurrence: DE)
  Receive Date: 20140610
  Receipt Date: 20140618
  Transmission Date: 20141212
  Serious: Yes (Life-Threatening)
  Sender: FDA-Public Use
  Company Number: DE-BRISTOL-MYERS SQUIBB COMPANY-20980777

PATIENT
  Age: 16 Year
  Sex: Male

DRUGS (1)
  1. ABILIFY TABS [Suspect]
     Dosage: 21FEB14 TO 25FEB14: 10MG/DAY?26FEB14 TO 03MAR14: 20MG/DAY?04MAR14 TO 05MAR14: 5MG/DAY
     Route: 048
     Dates: start: 20140221

REACTIONS (3)
  - Neuroleptic malignant syndrome [Recovered/Resolved]
  - Stupor [Recovered/Resolved]
  - Laboratory test abnormal [Recovered/Resolved]
